FAERS Safety Report 8841683 (Version 1)
Quarter: 2012Q4

REPORT INFORMATION
  Report Type: 
  Country: US (occurrence: US)
  Receive Date: 20121015
  Receipt Date: 20121015
  Transmission Date: 20130627
  Serious: No
  Sender: FDA-Public Use
  Company Number: US-PFIZER INC-2012252714

PATIENT
  Age: 73 Year
  Sex: Female
  Weight: 49.89 kg

DRUGS (2)
  1. FLECTOR [Suspect]
     Indication: BACK PAIN
     Dosage: UNK, one patch in every twelve hours for 5 days in a week
     Dates: start: 20120919
  2. ADVIL [Concomitant]
     Indication: BACK PAIN
     Dosage: 2 DF, 2x/day

REACTIONS (3)
  - Eye pruritus [Not Recovered/Not Resolved]
  - Rash [Not Recovered/Not Resolved]
  - Eye swelling [Not Recovered/Not Resolved]
